FAERS Safety Report 19844247 (Version 2)
Quarter: 2021Q4

REPORT INFORMATION
  Report Type: Spontaneous
  Country: JP (occurrence: JP)
  Receive Date: 20210916
  Receipt Date: 20211001
  Transmission Date: 20220303
  Serious: Yes (Other)
  Sender: FDA-Public Use
  Company Number: JP-PFIZER INC-202101149749

PATIENT
  Age: 44 Year
  Sex: Female

DRUGS (10)
  1. PACLITAXEL [Suspect]
     Active Substance: PACLITAXEL
     Indication: Neoadjuvant therapy
     Dosage: 134 MG, WEEKLY
     Route: 041
     Dates: start: 20210610, end: 20210624
  2. ADRIAMYCIN [Suspect]
     Active Substance: DOXORUBICIN HYDROCHLORIDE
     Indication: Neoadjuvant therapy
     Dosage: 100 MG, DAILY
     Route: 041
     Dates: start: 20210318, end: 20210520
  3. CYCLOPHOSPHAMIDE [Suspect]
     Active Substance: CYCLOPHOSPHAMIDE
     Indication: Neoadjuvant therapy
     Dosage: 1030 MG, DAILY
     Route: 041
     Dates: start: 20210318, end: 20210520
  4. TENELIGLIPTIN [Concomitant]
     Active Substance: TENELIGLIPTIN
     Dosage: 20 MG, 1X/DAY (AFTER BREAKFAST)
  5. ALPRAZOLAM [Concomitant]
     Active Substance: ALPRAZOLAM
     Dosage: 1.2 MG, 3X/DAY (AFTER EACH MEAL)
  6. MAGNESIUM DIOXIDE [Concomitant]
     Dosage: 330 MG, 3X/DAY (AFTER EACH MEAL)
  7. FAMOTIDINE [Concomitant]
     Active Substance: FAMOTIDINE
     Dosage: 20 MG, 1X/DAY (AFTER DINNER)
  8. NOVORAPID [Concomitant]
     Active Substance: INSULIN ASPART
  9. INSULIN GLARGINE [Concomitant]
     Active Substance: INSULIN GLARGINE
  10. ACETAMINOPHEN [Concomitant]
     Active Substance: ACETAMINOPHEN
     Dosage: 200 MG, AS NEEDED

REACTIONS (1)
  - Interstitial lung disease [Recovering/Resolving]

NARRATIVE: CASE EVENT DATE: 20210617
